FAERS Safety Report 13012972 (Version 1)
Quarter: 2016Q4

REPORT INFORMATION
  Report Type: Spontaneous
  Country: US (occurrence: US)
  Receive Date: 20161209
  Receipt Date: 20161209
  Transmission Date: 20170207
  Serious: Yes (Hospitalization, Other)
  Sender: FDA-Public Use
  Company Number: US-SAOL THERAPEUTICS-2016SAO01192

PATIENT
  Sex: Female

DRUGS (3)
  1. DILAUDID [Suspect]
     Active Substance: HYDROMORPHONE HYDROCHLORIDE
     Dosage: 7.698 MG, \DAY
  2. CLONIDINE. [Suspect]
     Active Substance: CLONIDINE
     Dosage: 192.45 ?G, \DAY
  3. BACLOFEN. [Suspect]
     Active Substance: BACLOFEN
     Dosage: 192.45 ?G, \DAY

REACTIONS (2)
  - Implant site infection [Not Recovered/Not Resolved]
  - Implant site pain [Not Recovered/Not Resolved]
